FAERS Safety Report 12734297 (Version 6)
Quarter: 2016Q4

REPORT INFORMATION
  Report Type: Report from Study
  Country: PL (occurrence: PL)
  Receive Date: 20160912
  Receipt Date: 20161223
  Transmission Date: 20170207
  Serious: Yes (Life-Threatening, Hospitalization, Other)
  Sender: FDA-Public Use
  Company Number: PL-ASTRAZENECA-2016SE96594

PATIENT
  Age: 20419 Day
  Sex: Female

DRUGS (14)
  1. NATRIUM CHLORATUM [Concomitant]
  2. AMOKSIKLAV [Concomitant]
     Active Substance: AMOXICILLIN\CLAVULANATE POTASSIUM
  3. CLEXANE [Concomitant]
     Active Substance: ENOXAPARIN SODIUM
  4. KALIPOZ PROLONAGATUM [Concomitant]
  5. TAROMENTIN [Concomitant]
  6. VITAMINUM D3 [Concomitant]
     Dosage: 2000 UNITS OTHER
     Route: 048
     Dates: start: 20150512
  7. KALIUM CHLORATUM [Concomitant]
     Active Substance: POTASSIUM CHLORIDE
  8. RINGERI SOLUTION [Concomitant]
  9. LACIDOFIL [Concomitant]
     Active Substance: LACTOBACILLUS ACIDOPHILUS\LACTOBACILLUS RHAMNOSUS
  10. GLUCOSUM [Concomitant]
  11. NATRI BICARBONI [Concomitant]
  12. DAPAGLIFLOZIN [Suspect]
     Active Substance: DAPAGLIFLOZIN
     Indication: TYPE 1 DIABETES MELLITUS
     Route: 048
     Dates: start: 20160711, end: 20160826
  13. ACARD [Concomitant]
     Active Substance: ASPIRIN
  14. ATORIS [Concomitant]
     Active Substance: ATORVASTATIN CALCIUM
     Route: 048
     Dates: start: 20150512

REACTIONS (2)
  - Diabetic ketoacidosis [Recovered/Resolved]
  - Coma [Recovered/Resolved]

NARRATIVE: CASE EVENT DATE: 20160827
